FAERS Safety Report 5589349-7 (Version None)
Quarter: 2008Q1

REPORT INFORMATION
  Report Type: 
  Country: None (occurrence: None)
  Receive Date: 20080114
  Receipt Date: 20080103
  Transmission Date: 20080703
  Serious: Yes (Hospitalization)
  Sender: FDA-Public Use
  Company Number: US-JNJFOC-20080101168

PATIENT
  Sex: Female
  Weight: 81.65 kg

DRUGS (1)
  1. DURAGESIC-100 [Suspect]
     Indication: PAIN
     Dosage: TWO 100 UG/HR
     Route: 062

REACTIONS (3)
  - ABDOMINAL NEOPLASM [None]
  - INCORRECT DRUG ADMINISTRATION DURATION [None]
  - NEOPLASM MALIGNANT [None]
